FAERS Safety Report 18454752 (Version 1)
Quarter: 2020Q4

REPORT INFORMATION
  Report Type: Spontaneous
  Country: IT (occurrence: IT)
  Receive Date: 20201102
  Receipt Date: 20201102
  Transmission Date: 20210114
  Serious: Yes (Death)
  Sender: FDA-Public Use
  Company Number: IT-AMNEAL PHARMACEUTICALS-2020-AMRX-03415

PATIENT
  Age: 16 Year
  Sex: Male

DRUGS (2)
  1. ADRENACLICK [Suspect]
     Active Substance: EPINEPHRINE
     Indication: ANAPHYLACTIC REACTION
     Dosage: UNK
     Route: 030
  2. BETAMETHASONE. [Suspect]
     Active Substance: BETAMETHASONE
     Indication: ANAPHYLACTIC REACTION
     Dosage: UNK
     Route: 048

REACTIONS (2)
  - Cardiopulmonary failure [Fatal]
  - Drug ineffective [Fatal]
